FAERS Safety Report 9395915 (Version 1)
Quarter: 2013Q3

REPORT INFORMATION
  Report Type: Spontaneous
  Country: US (occurrence: US)
  Receive Date: 20130711
  Receipt Date: 20130711
  Transmission Date: 20140515
  Serious: No
  Sender: FDA-Public Use
  Company Number: US-TEVA-418218USA

PATIENT
  Age: 22 Year
  Sex: Female

DRUGS (1)
  1. PARAGARD 380A [Suspect]
     Indication: CONTRACEPTION
     Route: 015
     Dates: start: 20130422, end: 20130610

REACTIONS (2)
  - Oligomenorrhoea [Not Recovered/Not Resolved]
  - Device expulsion [Recovered/Resolved]
